FAERS Safety Report 18946932 (Version 2)
Quarter: 2023Q1

REPORT INFORMATION
  Report Type: Spontaneous
  Country: US (occurrence: None)
  Receive Date: 20210227
  Receipt Date: 20230223
  Transmission Date: 20230418
  Serious: Yes (Other)
  Sender: FDA-Public Use
  Company Number: US-ROCHE-2550409

PATIENT
  Age: 51 Year
  Sex: Female

DRUGS (16)
  1. XOLAIR [Suspect]
     Active Substance: OMALIZUMAB
     Indication: Idiopathic urticaria
     Route: 058
     Dates: start: 20180815
  2. XOLAIR [Suspect]
     Active Substance: OMALIZUMAB
  3. XOLAIR [Suspect]
     Active Substance: OMALIZUMAB
  4. XOLAIR [Suspect]
     Active Substance: OMALIZUMAB
     Route: 050
     Dates: start: 201908
  5. XOLAIR [Suspect]
     Active Substance: OMALIZUMAB
  6. XOLAIR [Suspect]
     Active Substance: OMALIZUMAB
  7. ATORVASTATIN [Concomitant]
     Active Substance: ATORVASTATIN
     Dates: start: 20191002
  8. CETIRIZINE [Concomitant]
     Active Substance: CETIRIZINE HYDROCHLORIDE
     Dates: start: 20180917
  9. EPIPEN [Concomitant]
     Active Substance: EPINEPHRINE
     Dates: start: 20180917
  10. CALCIUM [Concomitant]
     Active Substance: CALCIUM
     Dates: start: 20180917
  11. FEXOFENADINE [Concomitant]
     Active Substance: FEXOFENADINE HYDROCHLORIDE
     Dates: start: 20180917
  12. RANITIDINE [Concomitant]
     Active Substance: RANITIDINE
     Dates: start: 20180917
  13. HYDROXYZINE PAMOATE [Concomitant]
     Active Substance: HYDROXYZINE PAMOATE
     Dates: start: 20180917
  14. COUMADIN [Concomitant]
     Active Substance: WARFARIN SODIUM
  15. TAMOXIFEN [Concomitant]
     Active Substance: TAMOXIFEN
  16. CELEXA [Concomitant]
     Active Substance: CITALOPRAM HYDROBROMIDE

REACTIONS (7)
  - Breast cancer [Recovered/Resolved]
  - Hot flush [Not Recovered/Not Resolved]
  - Underdose [Not Recovered/Not Resolved]
  - Syringe issue [Unknown]
  - Off label use [Unknown]
  - Device defective [Unknown]
  - Device malfunction [Unknown]

NARRATIVE: CASE EVENT DATE: 20210101
